FAERS Safety Report 10405636 (Version 1)
Quarter: 2014Q3

REPORT INFORMATION
  Report Type: Spontaneous
  Country: US (occurrence: None)
  Receive Date: 20140821
  Receipt Date: 20140821
  Transmission Date: 20150326
  Serious: Yes (Hospitalization)
  Sender: FDA-Public Use
  Company Number: US-H14001-14-00388

PATIENT
  Age: 43 Year
  Sex: Male

DRUGS (4)
  1. DOXYCYCLINE. [Concomitant]
     Active Substance: DOXYCYCLINE
  2. CIPROFLOXACIN (CIPROFLOXACIN) (CIPROFLOXACIN) [Suspect]
     Active Substance: CIPROFLOXACIN
     Indication: Q FEVER
     Dosage: 1500 MG (750 MG, 2 IN 1 D), UNKNOWN
  3. RIFAMPIN (RIFAMPICIN) (RIFAMPICIN) [Suspect]
     Active Substance: RIFAMPIN
     Indication: Q FEVER
  4. HYDROXYCHLOROQUINE (HYDROXYCHLOROQUINE) (HYDROXYCHLOROQUINE) [Suspect]
     Active Substance: HYDROXYCHLOROQUINE
     Indication: Q FEVER

REACTIONS (14)
  - Hepatic enzyme increased [None]
  - Q fever [None]
  - Night sweats [None]
  - Dyspnoea [None]
  - Nausea [None]
  - Gastrointestinal disorder [None]
  - Disease recurrence [None]
  - Renal artery stenosis [None]
  - Vomiting [None]
  - Hypertensive emergency [None]
  - Pyrexia [None]
  - Acute psychosis [None]
  - Post procedural complication [None]
  - Epstein-Barr virus test positive [None]
